FAERS Safety Report 18542656 (Version 1)
Quarter: 2020Q4

REPORT INFORMATION
  Report Type: Report from Study
  Country: US (occurrence: US)
  Receive Date: 20201125
  Receipt Date: 20201125
  Transmission Date: 20210114
  Serious: No
  Sender: FDA-Public Use
  Company Number: NVSC2020US309799

PATIENT
  Sex: Male
  Weight: 82.9 kg

DRUGS (1)
  1. ILARIS [Suspect]
     Active Substance: CANAKINUMAB
     Indication: PRODUCT USED FOR UNKNOWN INDICATION
     Dosage: 150 MG, EVERY 60 DAYS
     Route: 058

REACTIONS (4)
  - Product dose omission issue [Unknown]
  - Inflammation [Unknown]
  - Headache [Unknown]
  - Arthralgia [Unknown]
